FAERS Safety Report 5800391-0 (Version None)
Quarter: 2008Q3

REPORT INFORMATION
  Report Type: 
  Country: None (occurrence: None)
  Receive Date: 20080702
  Receipt Date: 20080702
  Transmission Date: 20090109
  Serious: Yes (Death, Life-Threatening, Hospitalization)
  Sender: FDA-Public Use
  Company Number: None

PATIENT
  Age: 12 Year
  Sex: Female
  Weight: 40.8237 kg

DRUGS (1)
  1. RITUXAN [Suspect]

REACTIONS (8)
  - ABASIA [None]
  - BLINDNESS [None]
  - DISEASE COMPLICATION [None]
  - FAECAL INCONTINENCE [None]
  - MECHANICAL VENTILATION [None]
  - NAUSEA [None]
  - PARALYSIS [None]
  - VOMITING [None]
